FAERS Safety Report 15528281 (Version 1)
Quarter: 2018Q4

REPORT INFORMATION
  Report Type: Report from Study
  Country: US (occurrence: US)
  Receive Date: 20181018
  Receipt Date: 20181018
  Transmission Date: 20190205
  Serious: No
  Sender: FDA-Public Use
  Company Number: US-AMGEN-USASL2018137916

PATIENT
  Age: 63 Year
  Sex: Female

DRUGS (1)
  1. REPATHA [Suspect]
     Active Substance: EVOLOCUMAB
     Indication: HYPERCHOLESTEROLAEMIA
     Dosage: 140 MG, Q2WK
     Route: 065

REACTIONS (9)
  - Abdominal pain upper [Recovering/Resolving]
  - Diarrhoea [Recovering/Resolving]
  - Somnolence [Unknown]
  - Myalgia [Recovering/Resolving]
  - Muscle spasms [Recovering/Resolving]
  - Pain [Not Recovered/Not Resolved]
  - Mobility decreased [Unknown]
  - Back pain [Not Recovered/Not Resolved]
  - Sleep disorder due to a general medical condition [Recovering/Resolving]

NARRATIVE: CASE EVENT DATE: 201809
